FAERS Safety Report 8125545-2 (Version None)
Quarter: 2012Q1

REPORT INFORMATION
  Report Type: 
  Country: None (occurrence: None)
  Receive Date: 20120209
  Receipt Date: 20120203
  Transmission Date: 20120608
  Serious: Yes (Hospitalization, Disabling, Other)
  Sender: FDA-Public Use
  Company Number: US-PFIZER INC-2012032916

PATIENT
  Sex: Female

DRUGS (6)
  1. PROZAC [Concomitant]
     Indication: PSYCHOTIC DISORDER
  2. BUPROPION [Concomitant]
     Indication: DEPRESSION
     Dosage: UNK
     Dates: start: 20050823, end: 20070901
  3. CHANTIX [Suspect]
     Indication: SMOKING CESSATION THERAPY
     Dosage: STARTER PACK AND CONTINUING PACK
     Dates: start: 20070119, end: 20070410
  4. PROZAC [Concomitant]
     Indication: DEPRESSION
     Dosage: UNK
     Dates: start: 20060907, end: 20110101
  5. ZITHROMAX [Concomitant]
     Indication: BACTERIAL INFECTION
     Dosage: UNK
     Dates: start: 20051229, end: 20070301
  6. WELLBUTRIN [Concomitant]
     Indication: DEPRESSION
     Dosage: UNK
     Dates: start: 20050823, end: 20070901

REACTIONS (12)
  - SUICIDE ATTEMPT [None]
  - HALLUCINATION, AUDITORY [None]
  - SOCIAL PROBLEM [None]
  - PSYCHOTIC DISORDER [None]
  - DISTURBANCE IN ATTENTION [None]
  - IRRITABILITY [None]
  - MAJOR DEPRESSION [None]
  - RESTLESSNESS [None]
  - INTENTIONAL OVERDOSE [None]
  - INSOMNIA [None]
  - MEMORY IMPAIRMENT [None]
  - ANXIETY [None]
